FAERS Safety Report 7085472-9 (Version None)
Quarter: 2010Q4

REPORT INFORMATION
  Report Type: 
  Country: None (occurrence: None)
  Receive Date: 20101105
  Receipt Date: 20101027
  Transmission Date: 20110411
  Serious: Yes (Other)
  Sender: FDA-Public Use
  Company Number: US-PFIZER INC-2010137290

PATIENT
  Sex: Male
  Weight: 79.365 kg

DRUGS (5)
  1. LYRICA [Suspect]
     Indication: NEURALGIA
     Dosage: 100 MG, 2X/DAY
     Route: 048
     Dates: start: 20101027, end: 20101027
  2. CLONIDINE [Concomitant]
     Indication: HYPERTENSION
     Dosage: UNK
  3. PRILOSEC [Concomitant]
     Dosage: UNK
  4. VITAMINS [Concomitant]
     Dosage: UNK
  5. AMLODIPINE/VALSARTAN [Concomitant]
     Dosage: UNK

REACTIONS (3)
  - ACTIVITIES OF DAILY LIVING IMPAIRED [None]
  - FEELING ABNORMAL [None]
  - IMPAIRED DRIVING ABILITY [None]
